FAERS Safety Report 5508103-5 (Version None)
Quarter: 2007Q4

REPORT INFORMATION
  Report Type: 
  Country: None (occurrence: None)
  Receive Date: 20071106
  Receipt Date: 20071026
  Transmission Date: 20080405
  Serious: Yes (Hospitalization, Other)
  Sender: FDA-Public Use
  Company Number: US-RANBAXY-2007US-11106

PATIENT

DRUGS (3)
  1. ISOPTIN SR [Suspect]
     Dosage: 120 MG, UNK
     Route: 048
     Dates: start: 20051120, end: 20060221
  2. ACETYLSALICYLIC ACID SRT [Concomitant]
     Indication: ATRIAL FIBRILLATION
     Dosage: 75 MG, UNK
     Route: 065
  3. BENDROFLUMETHIAZIDE [Concomitant]
     Indication: BLOOD PRESSURE
     Dosage: 25 MG, UNK
     Route: 065

REACTIONS (3)
  - PAIN IN EXTREMITY [None]
  - PARAESTHESIA ORAL [None]
  - WEIGHT BEARING DIFFICULTY [None]
